FAERS Safety Report 4373497-3 (Version None)
Quarter: 2004Q1

REPORT INFORMATION
  Report Type: 
  Country: None (occurrence: None)
  Receive Date: 20040305
  Receipt Date: 20040126
  Transmission Date: 20041129
  Serious: Yes (Other)
  Sender: FDA-Public Use
  Company Number: 2004UW01349

PATIENT
  Age: 63 Year
  Sex: Male

DRUGS (5)
  1. CRESTOR [Suspect]
     Dosage: 10 MG PO
     Route: 048
     Dates: start: 20040119, end: 20040123
  2. COUMADIN [Concomitant]
  3. PRILOSEC [Concomitant]
  4. ATENOLOL [Concomitant]
  5. MAGNESIUM SULFATE [Concomitant]

REACTIONS (1)
  - FLUSHING [None]
